FAERS Safety Report 20660283 (Version 1)
Quarter: 2022Q1

REPORT INFORMATION
  Report Type: Spontaneous
  Country: PL (occurrence: PL)
  Receive Date: 20220331
  Receipt Date: 20220331
  Transmission Date: 20220423
  Serious: Yes (Other)
  Sender: FDA-Public Use
  Company Number: PL-PFIZER INC-202200478144

PATIENT
  Age: 87 Year
  Sex: Female

DRUGS (8)
  1. PALBOCICLIB [Suspect]
     Active Substance: PALBOCICLIB
     Dosage: 125 MG
  2. ZOLEDRONIC ACID [Suspect]
     Active Substance: ZOLEDRONIC ACID
     Dosage: 4MG I.V. EVERY 28 DAYS (DOSE ADJUSTED ACCORDING TO CREATININE CLEARANCE)
  3. LETROZOLE [Suspect]
     Active Substance: LETROZOLE
  4. ACETAMINOPHEN\TRAMADOL HYDROCHLORIDE [Concomitant]
     Active Substance: ACETAMINOPHEN\TRAMADOL HYDROCHLORIDE
     Dosage: 37,5+325MG
  5. RAMIPRIL [Concomitant]
     Active Substance: RAMIPRIL
  6. METOPROLOL TARTRATE [Concomitant]
     Active Substance: METOPROLOL TARTRATE
  7. CAPTOPRIL [Concomitant]
     Active Substance: CAPTOPRIL
  8. FUROSEMIDE [Concomitant]
     Active Substance: FUROSEMIDE

REACTIONS (2)
  - Neutropenia [Unknown]
  - Neoplasm progression [Unknown]
